FAERS Safety Report 7747421-7 (Version None)
Quarter: 2011Q3

REPORT INFORMATION
  Report Type: 
  Country: None (occurrence: None)
  Receive Date: 20110913
  Receipt Date: 20110907
  Transmission Date: 20111222
  Serious: Yes (Other)
  Sender: FDA-Public Use
  Company Number: JP-GLAXOSMITHKLINE-B0746067A

PATIENT
  Sex: Male

DRUGS (3)
  1. LAMICTAL [Suspect]
     Indication: BIPOLAR DISORDER
     Dosage: 25MG PER DAY
     Route: 048
     Dates: start: 20100401, end: 20110428
  2. CLONAZEPAM [Concomitant]
     Indication: BIPOLAR DISORDER
     Dosage: .5MG PER DAY
     Route: 048
  3. ZYPREXA [Concomitant]
     Indication: SCHIZOPHRENIA
     Dosage: 10MG PER DAY
     Route: 048

REACTIONS (1)
  - AGGRESSION [None]
